FAERS Safety Report 6427944-3 (Version None)
Quarter: 2009Q4

REPORT INFORMATION
  Report Type: 
  Country: None (occurrence: None)
  Receive Date: 20091105
  Receipt Date: 20091021
  Transmission Date: 20100525
  Serious: Yes (Other)
  Sender: FDA-Public Use
  Company Number: PHHY2009CN46395

PATIENT
  Age: 48 Year
  Sex: Male

DRUGS (3)
  1. SEBIVO [Suspect]
     Indication: HEPATITIS B
     Dosage: 600 MG, QD
     Route: 048
     Dates: start: 20080101, end: 20080101
  2. PEGYLATED INTERFERON ALFA-2A [Interacting]
     Dosage: 180 UG, QW
     Route: 030
  3. ADEFOVIR DIPIVOXIL KIT [Concomitant]
     Dosage: 10 MG, QD
     Dates: start: 20080101

REACTIONS (23)
  - AREFLEXIA [None]
  - AUTONOMIC NEUROPATHY [None]
  - AXONAL NEUROPATHY [None]
  - DRUG INTERACTION [None]
  - DRY SKIN [None]
  - GAIT DISTURBANCE [None]
  - HYPERAESTHESIA [None]
  - HYPOAESTHESIA [None]
  - HYPOHIDROSIS [None]
  - INSOMNIA [None]
  - NAIL DISCOLOURATION [None]
  - NAIL DYSTROPHY [None]
  - NERVE CONDUCTION STUDIES ABNORMAL [None]
  - NERVE INJURY [None]
  - NEUROTOXICITY [None]
  - PAIN IN EXTREMITY [None]
  - PARAESTHESIA [None]
  - PERIPHERAL COLDNESS [None]
  - PERIPHERAL NERVE LESION [None]
  - PERIPHERAL SENSORY NEUROPATHY [None]
  - PIGMENTATION DISORDER [None]
  - SKIN EXFOLIATION [None]
  - SOMATOSENSORY EVOKED POTENTIALS ABNORMAL [None]
